FAERS Safety Report 15226451 (Version 1)
Quarter: 2018Q3

REPORT INFORMATION
  Report Type: Spontaneous
  Country: US (occurrence: US)
  Receive Date: 20180706
  Receipt Date: 20180706
  Transmission Date: 20181010
  Serious: Yes (Disabling)
  Sender: FDA-Public Use
  Company Number: None

PATIENT
  Age: 37 Year
  Sex: Female
  Weight: 53.55 kg

DRUGS (5)
  1. NITROFUANTOIN MCR 100 MG CAP [Suspect]
     Active Substance: NITROFURANTOIN
     Indication: URINARY TRACT INFECTION
     Dosage: ?          QUANTITY:1 CAPSULE(S);?
     Route: 048
     Dates: start: 20180524, end: 20180528
  2. OMEGA?3 ACIDS [Concomitant]
     Active Substance: OMEGA-3 FATTY ACIDS
  3. MULTI?VITAMIN [Concomitant]
     Active Substance: .ALPHA.-TOCOPHEROL ACETATE, DL-\ASCORBIC ACID\CYANOCOBALAMIN\FLUORIDE ION\FOLIC ACID\NIACIN\PYRIDOXINE\RIBOFLAVIN\THIAMINE\VITAMIN A\VITAMIN D
  4. MAGNESIUM [Concomitant]
     Active Substance: MAGNESIUM
  5. CALCIUM [Concomitant]
     Active Substance: CALCIUM

REACTIONS (12)
  - Hyperacusis [None]
  - Peripheral coldness [None]
  - Muscle twitching [None]
  - Eye disorder [None]
  - Chest pain [None]
  - Paraesthesia [None]
  - Muscular weakness [None]
  - Saccadic eye movement [None]
  - Depression [None]
  - Hypoaesthesia [None]
  - Anxiety [None]
  - Muscle spasms [None]

NARRATIVE: CASE EVENT DATE: 20180524
